FAERS Safety Report 8205641-1 (Version None)
Quarter: 2012Q1

REPORT INFORMATION
  Report Type: 
  Country: None (occurrence: None)
  Receive Date: 20120313
  Receipt Date: 20120227
  Transmission Date: 20120608
  Serious: Yes (Death, Hospitalization, Other)
  Sender: FDA-Public Use
  Company Number: US-ALEXION-A201200058

PATIENT
  Sex: Male

DRUGS (15)
  1. INFLUENZA VACCINE [Suspect]
  2. METOPROLOL SUCCINATE [Concomitant]
     Dosage: 50 MG, BID
     Route: 048
  3. PREDNISONE [Concomitant]
  4. ARANESP [Concomitant]
  5. DILTIAZEM HCL [Concomitant]
  6. SOLIRIS [Suspect]
     Indication: PAROXYSMAL NOCTURNAL HAEMOGLOBINURIA
     Dosage: UNK
     Route: 042
     Dates: end: 20100115
  7. FUROSEMIDE [Concomitant]
  8. EXJADE [Concomitant]
  9. ASPIRIN [Concomitant]
     Dosage: 81 MG, QD
     Route: 048
  10. ASCORBIC ACID [Concomitant]
  11. OMEPRAZOLE [Concomitant]
     Dosage: 20 MG, QD
     Route: 048
  12. CENTRUM [Concomitant]
  13. POTASSIUM [Concomitant]
     Dosage: UNK
     Dates: end: 20110509
  14. SIMVASTATIN [Concomitant]
  15. FOLIC ACID [Concomitant]
     Dosage: 1 MG, QD
     Route: 048

REACTIONS (28)
  - CONDITION AGGRAVATED [None]
  - REGURGITATION [None]
  - DYSPEPSIA [None]
  - OESOPHAGEAL STENOSIS [None]
  - ARTHRALGIA [None]
  - HYPOTENSION [None]
  - CARDIAC FAILURE CONGESTIVE [None]
  - MYELODYSPLASTIC SYNDROME [None]
  - RED CELL DISTRIBUTION WIDTH INCREASED [None]
  - ASPARTATE AMINOTRANSFERASE INCREASED [None]
  - JOINT SWELLING [None]
  - COUGH [None]
  - UPPER GASTROINTESTINAL HAEMORRHAGE [None]
  - BLOOD ALKALINE PHOSPHATASE INCREASED [None]
  - DYSPHAGIA [None]
  - WEIGHT DECREASED [None]
  - DYSPNOEA [None]
  - CELLULITIS [None]
  - SPUTUM INCREASED [None]
  - PANCYTOPENIA [None]
  - CHOLELITHIASIS [None]
  - PSEUDOMONAS INFECTION [None]
  - DIARRHOEA [None]
  - LOWER RESPIRATORY TRACT INFECTION [None]
  - BLOOD BILIRUBIN INCREASED [None]
  - PAROXYSMAL NOCTURNAL HAEMOGLOBINURIA [None]
  - CHOLANGITIS [None]
  - URINARY TRACT INFECTION [None]
